FAERS Safety Report 4492899-8 (Version None)
Quarter: 2004Q4

REPORT INFORMATION
  Report Type: 
  Country: None (occurrence: None)
  Receive Date: 20041104
  Receipt Date: 20041005
  Transmission Date: 20050328
  Serious: Yes (Other)
  Sender: FDA-Public Use
  Company Number: JP-MERCK-0410USA00655

PATIENT
  Age: 69 Year
  Sex: Male

DRUGS (3)
  1. TIMOPTOL-XE [Suspect]
     Indication: GLAUCOMA
     Route: 047
     Dates: start: 20040610
  2. RIZE [Concomitant]
     Indication: SLEEP DISORDER
     Route: 048
  3. [THERAPY UNSPECIFIED] [Concomitant]
     Indication: SLEEP DISORDER
     Route: 048

REACTIONS (2)
  - ANOSMIA [None]
  - HYPOSMIA [None]
